FAERS Safety Report 6852534-8 (Version None)
Quarter: 2010Q3

REPORT INFORMATION
  Report Type: 
  Country: None (occurrence: None)
  Receive Date: 20100717
  Receipt Date: 20071121
  Transmission Date: 20110219
  Serious: No
  Sender: FDA-Public Use
  Company Number: US-PFIZER INC-2007098662

PATIENT
  Sex: Female
  Weight: 61.2 kg

DRUGS (5)
  1. CHANTIX [Suspect]
     Indication: SMOKING CESSATION THERAPY
     Dates: start: 20071110, end: 20071121
  2. METOPROLOL [Concomitant]
     Indication: HYPERTENSION
  3. WARFARIN SODIUM [Concomitant]
  4. LOVASTATIN [Concomitant]
     Indication: BLOOD CHOLESTEROL INCREASED
  5. HERBAL NOS/MINERALS NOS [Concomitant]

REACTIONS (5)
  - DYSGEUSIA [None]
  - INSOMNIA [None]
  - NAUSEA [None]
  - RETCHING [None]
  - VOMITING [None]
